FAERS Safety Report 7339267-9 (Version None)
Quarter: 2011Q1

REPORT INFORMATION
  Report Type: 
  Country: None (occurrence: None)
  Receive Date: 20110308
  Receipt Date: 20110303
  Transmission Date: 20110831
  Serious: Yes (Other)
  Sender: FDA-Public Use
  Company Number: US-PFIZER INC-2010152224

PATIENT
  Sex: Female
  Weight: 67.12 kg

DRUGS (3)
  1. DILANTIN [Suspect]
     Indication: EPILEPSY
     Dosage: 200 MG, DAILY
     Route: 048
     Dates: start: 19690101
  2. DILANTIN [Suspect]
     Indication: GRAND MAL CONVULSION
     Dosage: 2X 100MG DAILY
     Route: 048
  3. DILANTIN [Suspect]
     Indication: CONVULSION

REACTIONS (2)
  - OSTEOPOROSIS [None]
  - OSTEOARTHRITIS [None]
